FAERS Safety Report 8861493 (Version 1)
Quarter: 2012Q4

REPORT INFORMATION
  Report Type: Spontaneous
  Country: US (occurrence: None)
  Receive Date: 20121022
  Receipt Date: 20121022
  Transmission Date: 20130627
  Serious: Yes (Death)
  Sender: FDA-Public Use
  Company Number: DSA_60229_2012

PATIENT
  Age: 56 Year
  Sex: Female

DRUGS (7)
  1. XENAZINE 25 MG (NOT SPECIFIED) [Suspect]
     Indication: PRODUCT USED FOR UNKNOWN INDICATION
     Route: 048
  2. PRILOSEC [Concomitant]
  3. PAXIL CR [Concomitant]
  4. PROTONIX [Concomitant]
  5. IBUPROFEN [Concomitant]
  6. NEFAZODONE [Concomitant]
  7. ZOCOR [Concomitant]

REACTIONS (1)
  - Death [None]
